FAERS Safety Report 6724061-X (Version None)
Quarter: 2010Q2

REPORT INFORMATION
  Report Type: 
  Country: None (occurrence: None)
  Receive Date: 20100513
  Receipt Date: 20100506
  Transmission Date: 20101027
  Serious: Yes (Other)
  Sender: FDA-Public Use
  Company Number: B0652464A

PATIENT
  Age: 68 Year
  Sex: Male

DRUGS (3)
  1. CARTIA XT [Suspect]
     Indication: DRUG USE FOR UNKNOWN INDICATION
     Route: 065
  2. AUGMENTIN FORTE [Suspect]
     Indication: DRUG USE FOR UNKNOWN INDICATION
     Route: 065
  3. MOBIC [Suspect]
     Indication: DRUG USE FOR UNKNOWN INDICATION
     Route: 065

REACTIONS (1)
  - HAEMORRHAGE [None]
